FAERS Safety Report 25412130 (Version 3)
Quarter: 2025Q4

REPORT INFORMATION
  Report Type: Spontaneous
  Country: IN (occurrence: IN)
  Receive Date: 20250609
  Receipt Date: 20251009
  Transmission Date: 20260118
  Serious: Yes (Disabling, Other)
  Sender: GLENMARK
  Company Number: IN-MLMSERVICE-20250526-PI521202-00306-1

PATIENT
  Age: 65 Year
  Sex: Male

DRUGS (3)
  1. TACROLIMUS [Suspect]
     Active Substance: TACROLIMUS
     Indication: Immunosuppressant drug therapy
     Dosage: 5 MILLIGRAM, OD
     Route: 065
  2. MYCOPHENOLATE MOFETIL [Concomitant]
     Active Substance: MYCOPHENOLATE MOFETIL
     Indication: Immunosuppressant drug therapy
     Dosage: 1 GRAM, OD
     Route: 065
  3. PREDNISOLONE [Concomitant]
     Active Substance: PREDNISOLONE
     Indication: Immunosuppressant drug therapy
     Dosage: 5 MILLIGRAM, QD
     Route: 065

REACTIONS (3)
  - Dementia [Recovered/Resolved]
  - Neurotoxicity [Recovered/Resolved]
  - Cognitive disorder [Recovered/Resolved]
